FAERS Safety Report 8293760-3 (Version None)
Quarter: 2012Q2

REPORT INFORMATION
  Report Type: 
  Country: None (occurrence: None)
  Receive Date: 20120413
  Receipt Date: 20120402
  Transmission Date: 20120825
  Serious: Yes (Hospitalization)
  Sender: FDA-Public Use
  Company Number: JP-2012-12150

PATIENT
  Age: 44 Year
  Sex: Male
  Weight: 101 kg

DRUGS (10)
  1. PLETAL [Suspect]
     Indication: CEREBRAL INFARCTION
     Dosage: 200 MG MILLIGRAM(S), DAILY DOSE, ORAL
     Route: 048
  2. SODIUM BICARBONATE IN PLASTIC CONTAINER [Concomitant]
  3. HUMALOG [Concomitant]
  4. CARVEDILOL [Concomitant]
  5. FLUITRAN (TRICHLOMETHIAZIDE) [Concomitant]
  6. LASIX [Concomitant]
  7. ALLOPURINOL [Concomitant]
  8. GLUFAST (MITIGLINIDE CALCIUM) [Concomitant]
  9. LOSARTAN POTASSIUM [Concomitant]
  10. ARGAMATE (CALCIUM POLYSTYRENE SULFONATE) [Concomitant]

REACTIONS (2)
  - DYSPNOEA [None]
  - RENAL FAILURE ACUTE [None]
